FAERS Safety Report 7235904-8 (Version None)
Quarter: 2011Q1

REPORT INFORMATION
  Report Type: 
  Country: None (occurrence: None)
  Receive Date: 20110120
  Receipt Date: 20110112
  Transmission Date: 20110831
  Serious: Yes (Life-Threatening, Hospitalization, Other)
  Sender: FDA-Public Use
  Company Number: NL-GENZYME-CLOF-1001228

PATIENT
  Sex: Male
  Weight: 84 kg

DRUGS (13)
  1. EVOLTRA [Suspect]
     Indication: ACUTE MYELOID LEUKAEMIA
     Dosage: 31 MG, QOD
     Route: 042
     Dates: start: 20100904, end: 20100912
  2. CYTARABINE [Suspect]
     Indication: ACUTE MYELOID LEUKAEMIA
     Dosage: 200 MG, QD
     Route: 042
     Dates: start: 20100903, end: 20100912
  3. ONDANSETRON [Concomitant]
     Indication: PROPHYLAXIS OF NAUSEA AND VOMITING
     Dosage: 8 MG, BID
     Route: 048
     Dates: start: 20100904, end: 20100914
  4. OXAZEPAM [Concomitant]
     Indication: DELIRIUM
     Dosage: 10 MG, TID
     Route: 048
     Dates: start: 20100918, end: 20100919
  5. ACYCLOVIR [Concomitant]
     Indication: MENINGITIS
     Dosage: 750 MG, TID
     Route: 042
     Dates: start: 20100918, end: 20100919
  6. POTASSIUM CHLORIDE [Concomitant]
     Indication: BLOOD POTASSIUM DECREASED
     Dosage: 2 MMOL, Q1HR
     Route: 042
     Dates: start: 20100915, end: 20100919
  7. COTRIM [Concomitant]
     Indication: INFECTION PROPHYLAXIS
     Dosage: 960 MG, BID
     Route: 048
     Dates: start: 20100906, end: 20100912
  8. IDARUBICIN [Suspect]
     Indication: ACUTE MYELOID LEUKAEMIA
     Dosage: 21 MG, QOD
     Route: 042
     Dates: start: 20100903, end: 20100907
  9. PETHIDINE [Concomitant]
     Indication: PAIN
     Dosage: 12.5 MG, UNK
     Route: 042
     Dates: start: 20100915, end: 20100919
  10. POTASSIUM CHLORIDE [Concomitant]
     Dosage: 120 MMOL, TID
     Route: 042
     Dates: start: 20100915, end: 20101124
  11. CEFTAZIDIME [Concomitant]
     Indication: FEBRILE NEUTROPENIA
     Dosage: 2 G, TID
     Route: 042
     Dates: start: 20100912, end: 20100919
  12. AMOXICILLIN [Concomitant]
     Indication: MENINGITIS
     Dosage: 2 G, Q4HR
     Route: 042
     Dates: start: 20100918, end: 20100919
  13. COLISTIN [Concomitant]
     Indication: INFECTION PROPHYLAXIS
     Dosage: 100 MG, QID
     Route: 048
     Dates: start: 20100904, end: 20100912

REACTIONS (6)
  - METABOLIC ACIDOSIS [None]
  - RESPIRATORY FAILURE [None]
  - DIARRHOEA [None]
  - PANCYTOPENIA [None]
  - NEUTROPENIC INFECTION [None]
  - DELIRIUM [None]
